FAERS Safety Report 4419702-6 (Version None)
Quarter: 2004Q3

REPORT INFORMATION
  Report Type: 
  Country: None (occurrence: None)
  Receive Date: 20040806
  Receipt Date: 20040806
  Transmission Date: 20050211
  Serious: Yes (Other)
  Sender: FDA-Public Use
  Company Number: None

PATIENT
  Sex: Male

DRUGS (2)
  1. SODIUM CHLORIDE 0.9% AND POTASSIUM CHLORIDE 20MEQ [Suspect]
     Dosage: 1000 ML IV
     Route: 042
     Dates: start: 20040804, end: 20040804
  2. DEXTROSE 5% AND POTASSIUM CHLORIDE 20MEQ [Suspect]

REACTIONS (1)
  - MEDICATION ERROR [None]
